FAERS Safety Report 5719710-9 (Version None)
Quarter: 2008Q2

REPORT INFORMATION
  Report Type: 
  Country: None (occurrence: None)
  Receive Date: 20080428
  Receipt Date: 20070306
  Transmission Date: 20081010
  Serious: No
  Sender: FDA-Public Use
  Company Number: A0642320A

PATIENT

DRUGS (1)
  1. ZOFRAN [Suspect]
     Indication: NAUSEA
     Route: 042

REACTIONS (1)
  - NO THERAPEUTIC RESPONSE [None]
